FAERS Safety Report 9752756 (Version 1)
Quarter: 2013Q4

REPORT INFORMATION
  Report Type: Spontaneous
  Country: IT (occurrence: IT)
  Receive Date: 20131213
  Receipt Date: 20131213
  Transmission Date: 20140711
  Serious: Yes (Hospitalization)
  Sender: FDA-Public Use
  Company Number: IT-TEVA-448510ISR

PATIENT
  Age: 57 Year
  Sex: Female
  Weight: 55 kg

DRUGS (3)
  1. FLUOROURACILE TEVA [Suspect]
     Indication: COLON CANCER
     Dosage: 5100 MILLIGRAM DAILY;
     Route: 042
     Dates: start: 20131029, end: 20131031
  2. IRINOTECAN [Suspect]
     Indication: COLON CANCER
     Dosage: 260 MILLIGRAM DAILY;
     Route: 042
     Dates: start: 20131029, end: 20131029
  3. OXALIPLATINO HOSPIRA [Concomitant]
     Dosage: 130 MILLIGRAM DAILY;
     Route: 042
     Dates: start: 20131029, end: 20131029

REACTIONS (1)
  - Febrile neutropenia [Recovered/Resolved]
